FAERS Safety Report 8285500-9 (Version None)
Quarter: 2012Q2

REPORT INFORMATION
  Report Type: 
  Country: None (occurrence: None)
  Receive Date: 20120413
  Receipt Date: 20111216
  Transmission Date: 20120825
  Serious: No
  Sender: FDA-Public Use
  Company Number: US-ASTRAZENECA-2011SE76639

PATIENT
  Age: 60 Year
  Sex: Female

DRUGS (2)
  1. NAPROXEN [Concomitant]
  2. NEXIUM [Suspect]
     Route: 048

REACTIONS (1)
  - ULCER [None]
